FAERS Safety Report 4977449-1 (Version None)
Quarter: 2006Q2

REPORT INFORMATION
  Report Type: 
  Country: None (occurrence: None)
  Receive Date: 20060413
  Receipt Date: 20060406
  Transmission Date: 20061013
  Serious: Yes (Other)
  Sender: FDA-Public Use
  Company Number: A-CH2006-11978

PATIENT
  Age: 67 Year
  Sex: Female
  Weight: 75 kg

DRUGS (8)
  1. TRACLEER [Suspect]
     Indication: PULMONARY HYPERTENSION
     Dosage: SEE IMAGE
     Route: 048
     Dates: start: 20060301, end: 20060402
  2. TRACLEER [Suspect]
     Indication: PULMONARY HYPERTENSION
     Dosage: SEE IMAGE
     Route: 048
     Dates: start: 20060403
  3. FALITHROM (PHENPROCOUMON) [Concomitant]
  4. AMLODIPINE [Concomitant]
  5. CARVEDILOL [Concomitant]
  6. CLOMIPRAMINE HCL [Concomitant]
  7. CALCIMAGON (CALCIUM CARBONATE) [Concomitant]
  8. COLECALCIFEROL [Concomitant]

REACTIONS (2)
  - EPISTAXIS [None]
  - PROTHROMBIN TIME PROLONGED [None]
